FAERS Safety Report 14937279 (Version 1)
Quarter: 2018Q2

REPORT INFORMATION
  Report Type: Spontaneous
  Country: TR (occurrence: TR)
  Receive Date: 20180525
  Receipt Date: 20180525
  Transmission Date: 20180711
  Serious: Yes (Hospitalization, Other)
  Sender: FDA-Public Use
  Company Number: TR-LUPIN PHARMACEUTICALS INC.-2018-04017

PATIENT
  Age: 38 Year
  Sex: Female

DRUGS (4)
  1. PROPOFOL. [Suspect]
     Active Substance: PROPOFOL
     Indication: MIGRAINE
     Dosage: 30-40 MG INCREASED IN 3 WEEKS TO 70 MG/DAY
     Route: 042
  2. PAROXETINE. [Suspect]
     Active Substance: PAROXETINE
     Indication: DEPRESSION
     Dosage: 20 MG, ONCE A DAY
     Route: 048
  3. PROPOFOL. [Suspect]
     Active Substance: PROPOFOL
     Dosage: 70 MG, ONCE A DAY
     Route: 042
  4. PETHIDINE [Concomitant]
     Active Substance: MEPERIDINE
     Indication: MIGRAINE
     Route: 042

REACTIONS (2)
  - Drug ineffective [Unknown]
  - Drug dependence [Unknown]
